FAERS Safety Report 16016236 (Version 1)
Quarter: 2019Q1

REPORT INFORMATION
  Report Type: Spontaneous
  Country: MX (occurrence: MX)
  Receive Date: 20190227
  Receipt Date: 20190227
  Transmission Date: 20190418
  Serious: Yes (Other)
  Sender: FDA-Public Use
  Company Number: None

PATIENT
  Age: 58 Year
  Sex: Female
  Weight: 60.75 kg

DRUGS (2)
  1. VITAMINS [Concomitant]
     Active Substance: VITAMINS
  2. KADCYLA [Suspect]
     Active Substance: ADO-TRASTUZUMAB EMTANSINE

REACTIONS (9)
  - Madarosis [None]
  - Dysgeusia [None]
  - Depression [None]
  - Alopecia [None]
  - Fatigue [None]
  - Headache [None]
  - Anxiety [None]
  - Nausea [None]
  - Neuropathy peripheral [None]

NARRATIVE: CASE EVENT DATE: 20190225
